FAERS Safety Report 9132138 (Version 1)
Quarter: 2013Q1

REPORT INFORMATION
  Report Type: Spontaneous
  Country: FR (occurrence: FR)
  Receive Date: 20130208
  Receipt Date: 20130208
  Transmission Date: 20140127
  Serious: Yes (Hospitalization)
  Sender: FDA-Public Use
  Company Number: FR-ABBOTT-13P-056-1045402-00

PATIENT
  Age: 13 None
  Sex: Male

DRUGS (6)
  1. HUMIRA [Suspect]
     Indication: JUVENILE IDIOPATHIC ARTHRITIS
     Dosage: 1 INJECTION EVERY 15 DAYS
     Route: 058
  2. LAMALINE [Suspect]
     Indication: MIGRAINE
  3. IMETH [Suspect]
     Indication: JUVENILE IDIOPATHIC ARTHRITIS
     Dosage: 10MG/WEEK (7.4MG/M2)
     Route: 048
  4. APRANAX [Suspect]
     Indication: JUVENILE IDIOPATHIC ARTHRITIS
     Route: 048
     Dates: start: 20120928
  5. FOLIC ACID [Suspect]
     Indication: PRODUCT USED FOR UNKNOWN INDICATION
     Route: 048
  6. SIBELIUM [Suspect]
     Indication: MIGRAINE
     Route: 048

REACTIONS (4)
  - Nephrolithiasis [Recovered/Resolved]
  - Haematuria [Unknown]
  - Abdominal pain [Unknown]
  - Haematuria [Unknown]
